FAERS Safety Report 9602496 (Version 2)
Quarter: 2013Q4

REPORT INFORMATION
  Report Type: Spontaneous
  Country: BR (occurrence: BR)
  Receive Date: 20131007
  Receipt Date: 20131118
  Transmission Date: 20140711
  Serious: Yes (Other)
  Sender: FDA-Public Use
  Company Number: BR-SA-2013SA096321

PATIENT
  Age: 39 Year
  Sex: Female

DRUGS (1)
  1. TAXOTERE [Suspect]
     Indication: BREAST CANCER
     Route: 042
     Dates: start: 20130627, end: 20130923

REACTIONS (5)
  - Flushing [Unknown]
  - Respiratory disorder [Unknown]
  - Hypertension [Unknown]
  - Heart rate increased [Unknown]
  - Hypotension [Unknown]
